FAERS Safety Report 7544453-9 (Version None)
Quarter: 2011Q2

REPORT INFORMATION
  Report Type: 
  Country: None (occurrence: None)
  Receive Date: 20110613
  Receipt Date: 20090319
  Transmission Date: 20111010
  Serious: Yes (Hospitalization, Other)
  Sender: FDA-Public Use
  Company Number: PHMT2006CA00594

PATIENT
  Sex: Female

DRUGS (8)
  1. LEVOTHYROXINE SODIUM [Concomitant]
  2. SEREVENT [Concomitant]
  3. SALBUTAMOL SULFATE [Concomitant]
  4. ZESTRIL [Concomitant]
  5. SANDOSTATIN LAR [Suspect]
     Indication: ACROMEGALY
     Dosage: 30 MG, EVERY 4 WEEKS
     Dates: start: 20010108
  6. ADALAT CC [Concomitant]
  7. FLOVENT [Concomitant]
  8. MINIPRESS [Concomitant]

REACTIONS (7)
  - TRIGEMINAL NERVE DISORDER [None]
  - FATIGUE [None]
  - VIITH NERVE PARALYSIS [None]
  - INTESTINAL OBSTRUCTION [None]
  - HEADACHE [None]
  - WEIGHT DECREASED [None]
  - PAIN [None]
